FAERS Safety Report 14631230 (Version 2)
Quarter: 2018Q2

REPORT INFORMATION
  Report Type: Report from Study
  Country: AU (occurrence: AU)
  Receive Date: 20180313
  Receipt Date: 20180508
  Transmission Date: 20180711
  Serious: Yes (Hospitalization, Other)
  Sender: FDA-Public Use
  Company Number: AU-MYLANLABS-2016M1043164

PATIENT
  Sex: Male

DRUGS (1)
  1. CLOZARIL [Suspect]
     Active Substance: CLOZAPINE
     Indication: SCHIZOPHRENIA
     Dosage: 800 MG, UNK
     Route: 048
     Dates: start: 20160729

REACTIONS (9)
  - Aggression [Not Recovered/Not Resolved]
  - Huntington^s disease [Recovered/Resolved]
  - Drug dose omission [Not Recovered/Not Resolved]
  - Physical assault [Unknown]
  - Malaise [Unknown]
  - Emotional distress [Unknown]
  - Head banging [Unknown]
  - Suicide threat [Unknown]
  - Intentional self-injury [Unknown]

NARRATIVE: CASE EVENT DATE: 2016
